FAERS Safety Report 8024574-7 (Version None)
Quarter: 2012Q1

REPORT INFORMATION
  Report Type: 
  Country: None (occurrence: None)
  Receive Date: 20120103
  Receipt Date: 20111220
  Transmission Date: 20120608
  Serious: Yes (Hospitalization, Other)
  Sender: FDA-Public Use
  Company Number: US-2011-10884

PATIENT
  Age: 52 Year
  Sex: Female

DRUGS (8)
  1. IBUPROFEN [Concomitant]
  2. OPC-41061 (TOLVAPTAN) TABLET, 15MG MILLIGRAM(S) [Suspect]
     Indication: CONGENITAL CYSTIC KIDNEY DISEASE
     Dosage: 45/15MG SPLIT DOSE, ORAL
     Route: 048
     Dates: start: 20110427, end: 20111021
  3. OLMESARTAN MEDOXOMIL [Concomitant]
  4. AMLODIPIN (AMLODIPINE BESILATE) [Concomitant]
  5. BUSCOPAN PLUS (HYOSCINE BUTYLBROMIDE, PARACETAMOL) [Concomitant]
  6. ACETAMINOPHEN [Concomitant]
  7. ASPIRIN [Concomitant]
  8. ASCORBINSAEURE (ASCORBIC ACID) [Concomitant]

REACTIONS (5)
  - GAMMA-GLUTAMYLTRANSFERASE INCREASED [None]
  - ALANINE AMINOTRANSFERASE INCREASED [None]
  - BLOOD ALKALINE PHOSPHATASE INCREASED [None]
  - CONDITION AGGRAVATED [None]
  - HEPATIC CYST [None]
